FAERS Safety Report 6983414-5 (Version None)
Quarter: 2010Q3

REPORT INFORMATION
  Report Type: 
  Country: None (occurrence: None)
  Receive Date: 20100914
  Receipt Date: 20100914
  Transmission Date: 20110219
  Serious: Yes (Hospitalization)
  Sender: FDA-Public Use
  Company Number: None

PATIENT
  Sex: Female
  Weight: 10.8 kg

DRUGS (2)
  1. CISPLATIN [Suspect]
     Dosage: 72 MG
  2. ETOPOSIDE [Suspect]
     Dosage: 216 MG

REACTIONS (10)
  - ASCITES [None]
  - DRUG TOXICITY [None]
  - HYPOXIA [None]
  - NEPHRECTOMY [None]
  - PERICARDIAL EFFUSION [None]
  - PERITONEAL DIALYSIS [None]
  - PLEURAL EFFUSION [None]
  - PULMONARY HAEMORRHAGE [None]
  - RENAL FAILURE [None]
  - RESPIRATORY DISTRESS [None]
